FAERS Safety Report 9692673 (Version 1)
Quarter: 2013Q4

REPORT INFORMATION
  Report Type: Spontaneous
  Country: DE (occurrence: DE)
  Receive Date: 20131118
  Receipt Date: 20131118
  Transmission Date: 20140711
  Serious: Yes (Hospitalization, Other)
  Sender: FDA-Public Use
  Company Number: PHHY2013DE130524

PATIENT
  Age: 21 Year
  Sex: Female

DRUGS (3)
  1. DICLOFENAC [Suspect]
     Indication: BACK PAIN
  2. LORAZEPAM [Concomitant]
  3. HALOPERIDOL [Concomitant]

REACTIONS (10)
  - Porphyria [Recovering/Resolving]
  - Urine porphobilinogen increased [Recovering/Resolving]
  - Abdominal pain [Recovering/Resolving]
  - Brain oedema [Recovering/Resolving]
  - Aphasia [Recovering/Resolving]
  - Hyponatraemia [Recovering/Resolving]
  - Communication disorder [Recovering/Resolving]
  - Altered state of consciousness [Recovering/Resolving]
  - Back pain [Recovering/Resolving]
  - Speech disorder [Recovering/Resolving]
